FAERS Safety Report 17028438 (Version 2)
Quarter: 2019Q4

REPORT INFORMATION
  Report Type: Spontaneous
  Country: JP (occurrence: JP)
  Receive Date: 20191113
  Receipt Date: 20191205
  Transmission Date: 20200122
  Serious: Yes (Hospitalization, Other)
  Sender: FDA-Public Use
  Company Number: JP-GILEAD-2019-0436838

PATIENT
  Age: 67 Year
  Sex: Female

DRUGS (11)
  1. PORTOLAC [Concomitant]
     Active Substance: LACTITOL
     Dosage: 6 DOSAGE FORM
  2. ALDACTONE A [Concomitant]
     Active Substance: SPIRONOLACTONE
     Dosage: 100 MG
  3. LAXOBERON [Concomitant]
     Active Substance: SODIUM PICOSULFATE
     Dosage: UNK, PRN
  4. EPCLUSA [Suspect]
     Active Substance: SOFOSBUVIR\VELPATASVIR
     Indication: HEPATIC CIRRHOSIS
     Dosage: UNK
     Route: 048
     Dates: start: 20191109
  5. GLYCYRON NO 2 [Concomitant]
     Dosage: 3 DOSAGE FORM
  6. LIVACT [ISOLEUCINE;LEUCINE;VALINE] [Concomitant]
     Dosage: 1 PACKAGE
  7. EPCLUSA [Suspect]
     Active Substance: SOFOSBUVIR\VELPATASVIR
     Indication: HEPATITIS C
     Dosage: UNK
     Route: 048
     Dates: start: 20191028, end: 20191105
  8. MAGMITT [Concomitant]
     Active Substance: MAGNESIUM OXIDE
     Dosage: 990 MG
  9. SENNOSIDES. [Concomitant]
     Active Substance: SENNOSIDES
     Dosage: 24 MG
  10. L-CARNITINE [LEVOCARNITINE HYDROCHLORIDE] [Concomitant]
     Dosage: 1500 MG
  11. LASIX [Concomitant]
     Active Substance: FUROSEMIDE
     Dosage: 20 MG

REACTIONS (3)
  - Hepatic encephalopathy [Recovered/Resolved]
  - Constipation [Recovered/Resolved]
  - Dehydration [Recovered/Resolved]

NARRATIVE: CASE EVENT DATE: 20191029
